FAERS Safety Report 5922822-8 (Version None)
Quarter: 2008Q4

REPORT INFORMATION
  Report Type: 
  Country: None (occurrence: None)
  Receive Date: 20081017
  Receipt Date: 20081013
  Transmission Date: 20090506
  Serious: No
  Sender: FDA-Public Use
  Company Number: US-B.I. PHARMACEUTICALS,INC./RIDGEFIELD-2008-BP-15777BP

PATIENT
  Age: 45 Year
  Sex: Male

DRUGS (1)
  1. ZANTAC 150 [Suspect]
     Indication: GASTRIC PH DECREASED
     Dosage: 150MG
     Route: 048
     Dates: start: 20080901

REACTIONS (1)
  - ANXIETY [None]
